FAERS Safety Report 8084539-6 (Version None)
Quarter: 2012Q1

REPORT INFORMATION
  Report Type: 
  Country: None (occurrence: None)
  Receive Date: 20120128
  Receipt Date: 20110331
  Transmission Date: 20120608
  Serious: No
  Sender: FDA-Public Use
  Company Number: US-ABBOTT-11P-163-0716547-00

PATIENT
  Sex: Female
  Weight: 67.646 kg

DRUGS (2)
  1. METHOTREXATE [Concomitant]
     Indication: RHEUMATOID ARTHRITIS
     Dosage: 6 TABS MONTHLY
  2. HUMIRA [Suspect]
     Indication: RHEUMATOID ARTHRITIS
     Route: 058
     Dates: start: 20080101

REACTIONS (5)
  - RASH ERYTHEMATOUS [None]
  - ACNE [None]
  - RASH PRURITIC [None]
  - NASAL DRYNESS [None]
  - NASAL CONGESTION [None]
